FAERS Safety Report 8110016-X (Version None)
Quarter: 2012Q1

REPORT INFORMATION
  Report Type: 
  Country: None (occurrence: None)
  Receive Date: 20120202
  Receipt Date: 20120104
  Transmission Date: 20120608
  Serious: Yes (Death)
  Sender: FDA-Public Use
  Company Number: US-COVIDIEN/TYCO HEALTHCARE/MALLINCKRODT-T201200100

PATIENT
  Age: 25 Year
  Sex: Female

DRUGS (6)
  1. ACETAMINOPHEN W/DIPHENHYDRAMINE HYDROCHLORIDE [Suspect]
  2. ETHANOL [Suspect]
  3. MORPHINE [Suspect]
  4. COCAINE [Suspect]
  5. OPIOID/SALICYLATE [Suspect]
  6. DIAZEPAM [Suspect]

REACTIONS (1)
  - COMPLETED SUICIDE [None]
